FAERS Safety Report 7230669-8 (Version None)
Quarter: 2011Q1

REPORT INFORMATION
  Report Type: 
  Country: None (occurrence: None)
  Receive Date: 20110118
  Receipt Date: 20110111
  Transmission Date: 20110831
  Serious: Yes (Death)
  Sender: FDA-Public Use
  Company Number: MY-BRACCO-000004

PATIENT
  Sex: Female

DRUGS (10)
  1. IOPAMIRO [Suspect]
     Indication: ABDOMINAL DISTENSION
     Route: 042
     Dates: start: 20100803, end: 20100803
  2. TRAMAL [Concomitant]
     Route: 042
  3. IOPAMIRO [Suspect]
     Indication: ABDOMINAL PAIN
     Route: 042
     Dates: start: 20100803, end: 20100803
  4. IOPAMIRO [Suspect]
     Indication: METASTASES TO PERITONEUM
     Route: 042
     Dates: start: 20100803, end: 20100803
  5. IOPAMIRO [Suspect]
     Indication: COMPUTERISED TOMOGRAM
     Route: 042
     Dates: start: 20100803, end: 20100803
  6. IOPAMIRO [Suspect]
     Indication: ASCITES
     Route: 042
     Dates: start: 20100803, end: 20100803
  7. IOPAMIRO [Suspect]
     Indication: OVARIAN CANCER
     Route: 042
     Dates: start: 20100803, end: 20100803
  8. PCM [Concomitant]
     Route: 065
  9. MESALAZINE [Concomitant]
     Route: 065
  10. MAXOLON [Concomitant]
     Route: 042

REACTIONS (8)
  - RESPIRATORY FAILURE [None]
  - CARDIAC ARREST [None]
  - CIRCULATORY COLLAPSE [None]
  - HYPERTENSION [None]
  - RHONCHI [None]
  - DYSPNOEA [None]
  - WHEEZING [None]
  - TACHYCARDIA [None]
